FAERS Safety Report 23944352 (Version 1)
Quarter: 2024Q2

REPORT INFORMATION
  Report Type: Spontaneous
  Country: JP (occurrence: JP)
  Receive Date: 20240606
  Receipt Date: 20240606
  Transmission Date: 20240715
  Serious: Yes (Hospitalization)
  Sender: FDA-Public Use
  Company Number: JP-Accord-427638

PATIENT
  Age: 65 Year
  Sex: Female

DRUGS (4)
  1. METHOTREXATE [Suspect]
     Active Substance: METHOTREXATE
     Indication: Rheumatoid arthritis
  2. VONOPRAZAN [Concomitant]
     Active Substance: VONOPRAZAN
  3. FOLIC ACID [Concomitant]
     Active Substance: FOLIC ACID
  4. IGURATIMOD [Concomitant]
     Active Substance: IGURATIMOD

REACTIONS (3)
  - Drug reaction with eosinophilia and systemic symptoms [Recovered/Resolved]
  - Hepatosplenomegaly [Recovered/Resolved]
  - Respiratory distress [Recovered/Resolved]
